FAERS Safety Report 9635300 (Version 2)
Quarter: 2013Q4

REPORT INFORMATION
  Report Type: Spontaneous
  Country: US (occurrence: US)
  Receive Date: 20131021
  Receipt Date: 20131021
  Transmission Date: 20140711
  Serious: Yes (Other)
  Sender: FDA-Public Use
  Company Number: US-NAPPMUNDI-USA-2013-0102209

PATIENT
  Sex: Male

DRUGS (1)
  1. BUTRANS [Suspect]
     Indication: PAIN
     Dosage: 10 MCG/HR, WEEKLY
     Route: 062
     Dates: end: 201305

REACTIONS (5)
  - Hallucination [Recovered/Resolved]
  - Psychotic disorder [Recovered/Resolved]
  - Delusional perception [Unknown]
  - Aggression [Unknown]
  - Agitation [Unknown]
